FAERS Safety Report 12718523 (Version 1)
Quarter: 2016Q3

REPORT INFORMATION
  Report Type: Report from Study
  Country: JP (occurrence: JP)
  Receive Date: 20160906
  Receipt Date: 20160906
  Transmission Date: 20161109
  Serious: Yes (Hospitalization)
  Sender: FDA-Public Use
  Company Number: PHHY2014JP063984

PATIENT
  Age: 38 Year
  Sex: Female

DRUGS (6)
  1. AFINITOR [Suspect]
     Active Substance: EVEROLIMUS
     Dosage: 5 MG, QD
     Route: 048
     Dates: start: 20120807, end: 20130109
  2. LOPEMIN                            /07959101/ [Concomitant]
     Active Substance: BERBERINE CHLORIDE\ENTEROCOCCUS FAECALIS\ETHACRIDINE LACTATE\LOPERAMIDE HYDROCHLORIDE
     Indication: PANCREATIC NEUROENDOCRINE TUMOUR
     Dosage: 1 MG, UNK
     Route: 048
  3. SANDOSTATIN [Concomitant]
     Active Substance: OCTREOTIDE ACETATE
     Indication: PANCREATIC NEUROENDOCRINE TUMOUR
     Dosage: 600 UG, UNK
     Route: 058
     Dates: end: 20120809
  4. AFINITOR [Suspect]
     Active Substance: EVEROLIMUS
     Indication: PANCREATIC NEUROENDOCRINE TUMOUR
     Dosage: 10 MG, QD
     Route: 048
     Dates: start: 20120714, end: 20120726
  5. PARIET [Concomitant]
     Active Substance: RABEPRAZOLE SODIUM
     Indication: PRODUCT USED FOR UNKNOWN INDICATION
     Dosage: 10 MG, UNK
     Route: 048
  6. SANDOSTATIN LAR DEPOT [Concomitant]
     Active Substance: OCTREOTIDE ACETATE
     Indication: PANCREATIC NEUROENDOCRINE TUMOUR
     Dosage: 30 IU, UNK
     Route: 030
     Dates: start: 20120810

REACTIONS (6)
  - Aspartate aminotransferase increased [Recovered/Resolved]
  - Alanine aminotransferase increased [Recovered/Resolved]
  - Malignant neoplasm progression [Unknown]
  - Dehydration [Recovered/Resolved]
  - Haemoglobin decreased [Recovered/Resolved]
  - Stomatitis [Recovered/Resolved]

NARRATIVE: CASE EVENT DATE: 20120726
